FAERS Safety Report 6808684-5 (Version None)
Quarter: 2010Q2

REPORT INFORMATION
  Report Type: 
  Country: None (occurrence: None)
  Receive Date: 20100629
  Receipt Date: 20090907
  Transmission Date: 20101027
  Serious: No
  Sender: FDA-Public Use
  Company Number: US-PFIZER INC-2009242048

PATIENT
  Sex: Male
  Weight: 114.3 kg

DRUGS (5)
  1. VIAGRA [Suspect]
     Dosage: UNK
  2. LYRICA [Concomitant]
     Dosage: UNK
  3. GABAPENTIN [Concomitant]
     Dosage: UNK
  4. PAXIL [Concomitant]
     Dosage: UNK
  5. TAMSULOSIN [Concomitant]
     Dosage: UNK

REACTIONS (3)
  - PAIN [None]
  - PROSTATIC DISORDER [None]
  - WEIGHT INCREASED [None]
